FAERS Safety Report 17331587 (Version 1)
Quarter: 2020Q1

REPORT INFORMATION
  Report Type: Spontaneous
  Country: IT (occurrence: IT)
  Receive Date: 20200128
  Receipt Date: 20200128
  Transmission Date: 20200409
  Serious: Yes (Hospitalization, Other)
  Sender: FDA-Public Use
  Company Number: IT-ASTRAZENECA-2020SE10261

PATIENT
  Age: 57 Year
  Sex: Female

DRUGS (5)
  1. BENTELAN [Concomitant]
     Active Substance: BETAMETHASONE SODIUM PHOSPHATE
     Dosage: 200/6
  2. ASPIRIN. [Concomitant]
     Active Substance: ASPIRIN
     Indication: ASTHMA
     Dosage: 200/6
  3. FASENRA [Suspect]
     Active Substance: BENRALIZUMAB
     Indication: ASTHMA
     Dosage: 30.0MG UNKNOWN
     Route: 058
  4. FOSTER [Concomitant]
     Active Substance: BECLOMETHASONE\FORMOTEROL
     Dosage: 200/6
  5. EKLIRA GENUAIR [Concomitant]
     Active Substance: ACLIDINIUM BROMIDE
     Dosage: 200/6

REACTIONS (8)
  - Apraxia [Unknown]
  - Asthenia [Unknown]
  - Full blood count decreased [Unknown]
  - Abdominal pain lower [Unknown]
  - Syncope [Recovering/Resolving]
  - Loss of consciousness [Unknown]
  - Hypotension [Unknown]
  - Malaise [Unknown]
